FAERS Safety Report 4825759-0 (Version None)
Quarter: 2005Q4

REPORT INFORMATION
  Report Type: 
  Country: None (occurrence: None)
  Receive Date: 20051109
  Receipt Date: 20051025
  Transmission Date: 20060501
  Serious: Yes (Hospitalization)
  Sender: FDA-Public Use
  Company Number: MEDI-0003764

PATIENT
  Age: 85 Year
  Sex: Female

DRUGS (16)
  1. ETHYOL [Suspect]
     Indication: RADIOTHERAPY
     Dosage: SUBCUTANEOUS
     Route: 058
     Dates: start: 20050915, end: 20051020
  2. RADIATION THERAPY [Concomitant]
  3. CHEMOTHERAPY [Concomitant]
  4. CAPTOPRIL [Concomitant]
  5. FOSAMAX [Concomitant]
  6. PHYTONADIONE [Concomitant]
  7. CALCIUM (CALCIUM) [Concomitant]
  8. MULTIVITAMIN [Concomitant]
  9. COMPAZINE [Concomitant]
  10. KYTRILL (GRANISETRON) [Concomitant]
  11. IMODIUM [Concomitant]
  12. HYDROCHLOROTHIAZIDE [Concomitant]
  13. OCUVITE (ASCORBIC ACID, TOCOPHEROL, RETINOL) [Concomitant]
  14. NEULASTA [Concomitant]
  15. PROCRIT (ERUYTHROPOIETIN) [Concomitant]
  16. AMBIEN [Concomitant]

REACTIONS (8)
  - ATELECTASIS [None]
  - CHRONIC OBSTRUCTIVE PULMONARY DISEASE [None]
  - DEHYDRATION [None]
  - HYPOKALAEMIA [None]
  - HYPOTHERMIA [None]
  - LUNG INFILTRATION [None]
  - PLEURAL EFFUSION [None]
  - PULMONARY EMBOLISM [None]
